FAERS Safety Report 5724384-7 (Version None)
Quarter: 2008Q2

REPORT INFORMATION
  Report Type: 
  Country: None (occurrence: None)
  Receive Date: 20080430
  Receipt Date: 20080418
  Transmission Date: 20081010
  Serious: Yes (Hospitalization)
  Sender: FDA-Public Use
  Company Number: US-PFIZER INC-2008034672

PATIENT
  Sex: Male

DRUGS (1)
  1. GEODON [Suspect]
     Dosage: DAILY DOSE:160MG-FREQ:DAILY

REACTIONS (1)
  - CELLULITIS [None]
